FAERS Safety Report 15551028 (Version 1)
Quarter: 2018Q4

REPORT INFORMATION
  Report Type: Spontaneous
  Country: GB (occurrence: GB)
  Receive Date: 20181025
  Receipt Date: 20181025
  Transmission Date: 20190205
  Serious: Yes (Hospitalization)
  Sender: FDA-Public Use
  Company Number: GB-TEVA-2018-GB-968282

PATIENT
  Age: 84 Year
  Sex: Male

DRUGS (12)
  1. QVAR [Concomitant]
     Active Substance: BECLOMETHASONE DIPROPIONATE
  2. PERINDOPRIL TERT-BUTYLAMINE [Suspect]
     Active Substance: PERINDOPRIL ERBUMINE
     Dosage: 4 MILLIGRAM DAILY;
     Route: 048
     Dates: end: 20180913
  3. RANITIDINE. [Concomitant]
     Active Substance: RANITIDINE
  4. ATORVASTATIN [Concomitant]
     Active Substance: ATORVASTATIN
  5. CLOPIDOGREL [Concomitant]
     Active Substance: CLOPIDOGREL BISULFATE
  6. WARFARIN [Concomitant]
     Active Substance: WARFARIN
  7. ADALAT CC [Suspect]
     Active Substance: NIFEDIPINE
     Route: 065
     Dates: end: 20180913
  8. CO-AMOXICLAV [Suspect]
     Active Substance: AMOXICILLIN\CLAVULANATE POTASSIUM
     Dosage: 500MG/125MG
     Route: 065
     Dates: start: 20180910, end: 20180913
  9. FLUCLOXACILLIN [Concomitant]
     Active Substance: FLUCLOXACILLIN
     Dates: start: 20180618, end: 20180624
  10. AMITRIPTYLINE [Concomitant]
     Active Substance: AMITRIPTYLINE
  11. BISOPROLOL [Suspect]
     Active Substance: BISOPROLOL
     Route: 065
  12. SALBUTAMOL [Concomitant]
     Active Substance: ALBUTEROL

REACTIONS (4)
  - Erythema multiforme [Recovering/Resolving]
  - Acute kidney injury [Unknown]
  - Orthostatic hypotension [Recovering/Resolving]
  - Syncope [Unknown]

NARRATIVE: CASE EVENT DATE: 20180912
